FAERS Safety Report 4888468-8 (Version None)
Quarter: 2005Q4

REPORT INFORMATION
  Report Type: 
  Country: None (occurrence: None)
  Receive Date: 20051207
  Receipt Date: 20050823
  Transmission Date: 20060501
  Serious: Yes (Other)
  Sender: FDA-Public Use
  Company Number: 2005108481

PATIENT
  Age: 61 Year
  Sex: Male
  Weight: 97.5234 kg

DRUGS (7)
  1. VIAGRA [Suspect]
     Indication: ERECTILE DYSFUNCTION
     Dosage: 100 MG (100 MG, AS NECESSARY), ORAL
     Route: 048
     Dates: start: 20040101
  2. LEXAPRO [Suspect]
     Indication: DEPRESSION
     Dosage: ORAL
     Route: 048
     Dates: start: 20031112, end: 20050101
  3. LORAZEPAM [Concomitant]
  4. ATENOLOL [Concomitant]
  5. INSULIN [Concomitant]
  6. NEXIUM [Concomitant]
  7. ASPIRIN [Concomitant]

REACTIONS (6)
  - DRUG INEFFECTIVE [None]
  - ERECTILE DYSFUNCTION [None]
  - ERECTION INCREASED [None]
  - HEADACHE [None]
  - NERVOUSNESS [None]
  - VISION BLURRED [None]
